FAERS Safety Report 5431809-3 (Version None)
Quarter: 2007Q3

REPORT INFORMATION
  Report Type: 
  Country: None (occurrence: None)
  Receive Date: 20070731
  Receipt Date: 20070611
  Transmission Date: 20080115
  Serious: No
  Sender: FDA-Public Use
  Company Number: US200706002606

PATIENT
  Age: 74 Year
  Sex: Male

DRUGS (11)
  1. BYETTA [Suspect]
     Indication: TYPE 2 DIABETES MELLITUS
     Dosage: 5 UG, 2/D, SUBCUTANEOUS; 10 UG, 2/D, SUBCUTANEOUS
     Route: 058
     Dates: start: 20060101, end: 20060101
  2. BYETTA [Suspect]
     Indication: TYPE 2 DIABETES MELLITUS
     Dosage: 5 UG, 2/D, SUBCUTANEOUS; 10 UG, 2/D, SUBCUTANEOUS
     Route: 058
     Dates: start: 20060101
  3. EXENATIDE PEN, DISPOSABLE DEVICE (EXENATIDE PEN) [Concomitant]
  4. LANTUS [Concomitant]
  5. ATENOLOL [Concomitant]
  6. SIMVASTATIN [Concomitant]
  7. HYDROCHLOROTHIAZIDE (HYDORCHLOROTHIAZIDE) [Concomitant]
  8. FELODIPINE [Concomitant]
  9. ACTOS [Concomitant]
  10. PLAVIX [Concomitant]
  11. ENALAPRIL MALEATE [Concomitant]

REACTIONS (3)
  - BLOOD CHOLESTEROL DECREASED [None]
  - BLOOD PRESSURE DECREASED [None]
  - OEDEMA PERIPHERAL [None]
